FAERS Safety Report 15536163 (Version 1)
Quarter: 2018Q4

REPORT INFORMATION
  Report Type: Spontaneous
  Country: US (occurrence: US)
  Receive Date: 20181022
  Receipt Date: 20181022
  Transmission Date: 20190205
  Serious: Yes (Hospitalization)
  Sender: FDA-Public Use
  Company Number: US-ACCORD-088956

PATIENT
  Age: 68 Year
  Sex: Male
  Weight: 67 kg

DRUGS (10)
  1. PARICALCITOL. [Concomitant]
     Active Substance: PARICALCITOL
     Route: 042
  2. PANTOPRAZOLE [Concomitant]
     Active Substance: PANTOPRAZOLE
     Route: 048
  3. CLONIDINE. [Concomitant]
     Active Substance: CLONIDINE
     Route: 048
  4. CINACALCET/CINACALCET HYDROCHLORIDE [Concomitant]
     Route: 048
  5. FORMOTEROL [Concomitant]
     Active Substance: FORMOTEROL
     Dosage: INHALED?TWICE DAILY
  6. NIFEDIPINE. [Concomitant]
     Active Substance: NIFEDIPINE
     Route: 048
  7. LISINOPRIL. [Concomitant]
     Active Substance: LISINOPRIL
     Route: 048
  8. METHOTREXATE. [Suspect]
     Active Substance: METHOTREXATE
     Indication: SQUAMOUS CELL CARCINOMA
     Route: 026
  9. ERYTHROPOIETIN HUMAN [Concomitant]
     Active Substance: ERYTHROPOIETIN
     Dosage: 24000 UNITS
     Route: 058
  10. SEVELAMER [Concomitant]
     Active Substance: SEVELAMER
     Dosage: WITH MEALS AND 1600 MG?WITH SNACKS
     Route: 048

REACTIONS (5)
  - Pancytopenia [Recovering/Resolving]
  - Hepatotoxicity [Recovering/Resolving]
  - Mucosal inflammation [Unknown]
  - Dyspnoea [Recovering/Resolving]
  - Rash pustular [Recovering/Resolving]
